FAERS Safety Report 15458617 (Version 1)
Quarter: 2018Q4

REPORT INFORMATION
  Report Type: Report from Study
  Country: US (occurrence: US)
  Receive Date: 20181003
  Receipt Date: 20181003
  Transmission Date: 20190204
  Serious: Yes (Hospitalization)
  Sender: FDA-Public Use
  Company Number: US-IPSEN BIOPHARMACEUTICALS, INC.-2018-08085

PATIENT
  Age: 57 Year
  Sex: Male
  Weight: 93.89 kg

DRUGS (9)
  1. ARBACLOFEN [Concomitant]
     Indication: MULTIPLE SCLEROSIS
     Route: 048
     Dates: start: 2013
  2. BACLOFEN. [Concomitant]
     Active Substance: BACLOFEN
     Dosage: 40 MG IN THE MORNING, 80 MG AT LUNCHTIME, 60 MG AT BEDTIME
     Route: 048
  3. ENOXAPARINE [Concomitant]
     Active Substance: ENOXAPARIN
     Indication: ANTICOAGULANT THERAPY
     Route: 058
  4. CIALIS [Concomitant]
     Active Substance: TADALAFIL
     Indication: ERECTILE DYSFUNCTION
     Route: 048
     Dates: start: 201405
  5. AMPYRA [Concomitant]
     Active Substance: DALFAMPRIDINE
     Indication: MULTIPLE SCLEROSIS
     Route: 048
     Dates: start: 201603
  6. AUBAGIO [Concomitant]
     Active Substance: TERIFLUNOMIDE
     Indication: MULTIPLE SCLEROSIS
     Route: 048
     Dates: start: 2016
  7. KEFLEX [Concomitant]
     Active Substance: CEPHALEXIN
     Route: 048
  8. DYSPORT [Suspect]
     Active Substance: ABOBOTULINUMTOXINA
     Indication: NEUROGENIC BLADDER
     Dosage: NOT REPORTED
     Route: 065
     Dates: start: 20170228, end: 20170228
  9. NITROFURANTOIN. [Concomitant]
     Active Substance: NITROFURANTOIN
     Indication: URINARY TRACT INFECTION
     Dates: start: 20170901

REACTIONS (1)
  - Urinary tract infection [Recovered/Resolved]

NARRATIVE: CASE EVENT DATE: 20171002
